FAERS Safety Report 21862021 (Version 2)
Quarter: 2023Q1

REPORT INFORMATION
  Report Type: Spontaneous
  Country: US (occurrence: US)
  Receive Date: 20230113
  Receipt Date: 20230201
  Transmission Date: 20230417
  Serious: No
  Sender: FDA-Public Use
  Company Number: US-Millicent Holdings Ltd.-MILL20230010

PATIENT
  Age: 79 Year
  Sex: Female

DRUGS (2)
  1. INTRAROSA [Suspect]
     Active Substance: PRASTERONE
     Indication: Vulvovaginal discomfort
     Dosage: UNKNOWN
     Route: 067
     Dates: start: 202210
  2. INTRAROSA [Suspect]
     Active Substance: PRASTERONE
     Indication: Vaginal disorder

REACTIONS (4)
  - Vulvovaginal discomfort [Not Recovered/Not Resolved]
  - Off label use [Not Recovered/Not Resolved]
  - Rash [Unknown]
  - Cystitis [Unknown]

NARRATIVE: CASE EVENT DATE: 20221001
